FAERS Safety Report 8826283 (Version 1)
Quarter: 2012Q4

REPORT INFORMATION
  Report Type: 
  Country: US (occurrence: US)
  Receive Date: 20121005
  Receipt Date: 20121005
  Transmission Date: 20130627
  Serious: Yes (Other)
  Sender: FDA-Public Use
  Company Number: US-ROCHE-1132092

PATIENT
  Sex: Female

DRUGS (3)
  1. RITUXAN [Suspect]
     Indication: OFF LABEL USE
     Route: 065
  2. RITUXAN [Suspect]
     Indication: DERMATOMYOSITIS
  3. RITUXAN [Suspect]
     Indication: POLYMYOSITIS

REACTIONS (5)
  - Dermatomyositis [Unknown]
  - Poikiloderma [Unknown]
  - Pain [Unknown]
  - Fatigue [Unknown]
  - Rash [Unknown]
